FAERS Safety Report 16713590 (Version 2)
Quarter: 2019Q3

REPORT INFORMATION
  Report Type: Report from Study
  Country: JP (occurrence: JP)
  Receive Date: 20190819
  Receipt Date: 20190822
  Transmission Date: 20191004
  Serious: Yes (Other)
  Sender: FDA-Public Use
  Company Number: JP-ALEXION-A201912147

PATIENT

DRUGS (39)
  1. TRAMAL [Suspect]
     Active Substance: TRAMADOL
     Indication: PAIN MANAGEMENT
     Dosage: 12.5 MG, QID
     Route: 048
     Dates: start: 20190123, end: 20190124
  2. PROGRAF [Concomitant]
     Active Substance: TACROLIMUS\TACROLIMUS ANHYDROUS
     Indication: MYASTHENIA GRAVIS
     Dosage: 2 MG, QD
     Route: 048
     Dates: start: 20151019, end: 20151210
  3. METHYLPREDNISOLONE SODIUM SUCCINATE. [Concomitant]
     Active Substance: METHYLPREDNISOLONE SODIUM SUCCINATE
     Dosage: 500 MG, QD
     Route: 042
     Dates: start: 20171128, end: 20171202
  4. PRIVINA                            /00419601/ [Concomitant]
     Indication: MYASTHENIA GRAVIS
     Dosage: UNK, PRN
     Route: 031
     Dates: start: 20151118
  5. RESTAMINE [Concomitant]
     Indication: PRURITUS
     Dosage: UNK, PRN
     Route: 062
     Dates: start: 20180920
  6. PROGRAF [Concomitant]
     Active Substance: TACROLIMUS\TACROLIMUS ANHYDROUS
     Dosage: 3 MG, QD
     Route: 048
     Dates: start: 20171207
  7. METHYLPREDNISOLONE SODIUM SUCCINATE. [Concomitant]
     Active Substance: METHYLPREDNISOLONE SODIUM SUCCINATE
     Dosage: 500 MG, QD
     Route: 042
     Dates: start: 20160927, end: 20161001
  8. PREDONINE [Concomitant]
     Active Substance: PREDNISOLONE
     Indication: MYASTHENIA GRAVIS
     Dosage: 5 MG, BID
     Route: 048
     Dates: start: 20170707
  9. CALONAL [Concomitant]
     Active Substance: ACETAMINOPHEN
     Indication: PAIN MANAGEMENT
     Dosage: 400 MG, PRN
     Route: 048
     Dates: start: 20180910, end: 20181218
  10. ROZEREM [Concomitant]
     Active Substance: RAMELTEON
     Indication: INSOMNIA
     Dosage: 8 MG, PRN
     Route: 048
     Dates: start: 20190124, end: 20190128
  11. ROPION [Concomitant]
     Active Substance: FLURBIPROFEN AXETIL
     Dosage: 50 MG, QD
     Route: 042
     Dates: start: 20190126, end: 20190126
  12. PROGRAF [Concomitant]
     Active Substance: TACROLIMUS\TACROLIMUS ANHYDROUS
     Dosage: 3 MG, QD
     Route: 048
     Dates: start: 20151211, end: 20171202
  13. METHYLPREDNISOLONE SODIUM SUCCINATE. [Concomitant]
     Active Substance: METHYLPREDNISOLONE SODIUM SUCCINATE
     Indication: MYASTHENIA GRAVIS
     Dosage: 500 MG, QD
     Route: 042
     Dates: start: 20160629, end: 20160705
  14. METHYLPREDNISOLONE SODIUM SUCCINATE. [Concomitant]
     Active Substance: METHYLPREDNISOLONE SODIUM SUCCINATE
     Dosage: 500 MG, QD
     Route: 042
     Dates: start: 20161208, end: 20161213
  15. METHYLPREDNISOLONE SODIUM SUCCINATE. [Concomitant]
     Active Substance: METHYLPREDNISOLONE SODIUM SUCCINATE
     Dosage: 500 MG, QD
     Route: 042
     Dates: start: 20190124, end: 20190128
  16. BIOFERMIN                          /01617201/ [Concomitant]
     Active Substance: DIETARY SUPPLEMENT\PROBIOTICS
     Indication: PROPHYLAXIS
     Dosage: 1 G, TID
     Route: 048
     Dates: start: 20160201
  17. KETOPROFEN. [Concomitant]
     Active Substance: KETOPROFEN
     Indication: PAIN MANAGEMENT
     Dosage: 40 MG, SINGLE
     Route: 062
     Dates: start: 20181010
  18. SOLIRIS [Suspect]
     Active Substance: ECULIZUMAB
     Indication: MYASTHENIA GRAVIS
     Dosage: 900 MG, QW
     Route: 042
     Dates: start: 20180911, end: 20181003
  19. MIGSIS [Concomitant]
     Active Substance: LOMERIZINE HYDROCHLORIDE
     Indication: MIGRAINE
     Dosage: 5 MG, BID
     Route: 048
     Dates: start: 20151118
  20. SOLIRIS [Suspect]
     Active Substance: ECULIZUMAB
     Dosage: 1200 MG, Q2W
     Route: 042
     Dates: start: 20181010
  21. MESTINON [Concomitant]
     Active Substance: PYRIDOSTIGMINE BROMIDE
     Indication: MYASTHENIA GRAVIS
     Dosage: 60 MG, QD
     Route: 048
     Dates: start: 20150925, end: 20151005
  22. MESTINON [Concomitant]
     Active Substance: PYRIDOSTIGMINE BROMIDE
     Dosage: 60 MG, BID
     Route: 048
     Dates: start: 20151006
  23. METHYLPREDNISOLONE SODIUM SUCCINATE. [Concomitant]
     Active Substance: METHYLPREDNISOLONE SODIUM SUCCINATE
     Dosage: 500 MG, QD
     Route: 042
     Dates: start: 20170412, end: 20170417
  24. METHYLPREDNISOLONE SODIUM SUCCINATE. [Concomitant]
     Active Substance: METHYLPREDNISOLONE SODIUM SUCCINATE
     Dosage: 500 MG, QD
     Route: 042
     Dates: start: 20180223, end: 20180227
  25. ADETPHOS [Concomitant]
     Active Substance: ADENOSINE TRIPHOSPHATE
     Indication: DEAFNESS
     Dosage: 100 MG, TID
     Route: 048
     Dates: start: 20180228
  26. DRUG NOT ADMINISTERED [Concomitant]
     Active Substance: UNSPECIFIED INGREDIENT
     Indication: INSOMNIA
     Dosage: 10 MG, PRN
     Route: 048
     Dates: start: 20190124, end: 20190128
  27. ROPION [Concomitant]
     Active Substance: FLURBIPROFEN AXETIL
     Indication: PAIN MANAGEMENT
     Dosage: 50 MG, QD
     Route: 042
     Dates: start: 20190124, end: 20190124
  28. METHYLPREDNISOLONE SODIUM SUCCINATE. [Concomitant]
     Active Substance: METHYLPREDNISOLONE SODIUM SUCCINATE
     Dosage: 500 MG, QD
     Route: 042
     Dates: start: 20180529, end: 20180603
  29. LANSOPRAZOLE. [Concomitant]
     Active Substance: LANSOPRAZOLE
     Indication: PROPHYLAXIS
     Dosage: 15 MG, QD
     Route: 048
     Dates: start: 20151212
  30. ARASENA A [Concomitant]
     Active Substance: VIDARABINE
     Indication: HERPES VIRUS INFECTION
     Dosage: APPROPRIATE AMOUNT, D
     Route: 062
     Dates: start: 20180222
  31. PREDNISOLONE. [Concomitant]
     Active Substance: PREDNISOLONE
     Dosage: 5 MG, QD
     Route: 048
     Dates: start: 20151027, end: 20170422
  32. PREDNISOLONE. [Concomitant]
     Active Substance: PREDNISOLONE
     Dosage: 7 MG, QD
     Route: 048
     Dates: start: 20170423, end: 20170707
  33. METHYLPREDNISOLONE SODIUM SUCCINATE. [Concomitant]
     Active Substance: METHYLPREDNISOLONE SODIUM SUCCINATE
     Dosage: 500 MG, QD
     Route: 042
     Dates: start: 20170628, end: 20170703
  34. BONOTEO [Concomitant]
     Active Substance: MINODRONIC ACID
     Indication: PROPHYLAXIS
     Dosage: 50 MG, Q4W
     Route: 048
     Dates: start: 20180305
  35. MECOBALAMIN [Concomitant]
     Active Substance: METHYLCOBALAMIN
     Indication: DEAFNESS
     Dosage: 500 ?G, TID
     Route: 048
     Dates: start: 20180228
  36. CALONAL [Concomitant]
     Active Substance: ACETAMINOPHEN
     Dosage: 600 MG, PRN
     Route: 048
     Dates: start: 20181219
  37. PREDNISOLONE. [Concomitant]
     Active Substance: PREDNISOLONE
     Indication: MYASTHENIA GRAVIS
     Dosage: 2 MG, QD
     Route: 048
     Dates: start: 20151019, end: 20151026
  38. PREDNISOLONE. [Concomitant]
     Active Substance: PREDNISOLONE
     Dosage: 10 MG, QD
     Route: 048
     Dates: start: 20170708
  39. SODIUM CITRATE AND CITRIC ACID [Concomitant]
     Active Substance: CITRIC ACID MONOHYDRATE\SODIUM CITRATE
     Indication: HYPOCHROMIC ANAEMIA
     Dosage: 50 MG, QD
     Route: 048
     Dates: start: 20170731

REACTIONS (5)
  - Myasthenia gravis [Unknown]
  - Taste disorder [Not Recovered/Not Resolved]
  - Diarrhoea [Recovering/Resolving]
  - Venous thrombosis [Not Recovered/Not Resolved]
  - Nausea [Recovered/Resolved]

NARRATIVE: CASE EVENT DATE: 20180926
